FAERS Safety Report 18507524 (Version 3)
Quarter: 2022Q2

REPORT INFORMATION
  Report Type: Spontaneous
  Country: US (occurrence: US)
  Receive Date: 20201116
  Receipt Date: 20220425
  Transmission Date: 20220721
  Serious: Yes (Other)
  Sender: FDA-Public Use
  Company Number: US-PFIZER INC-2020447689

PATIENT
  Age: 61 Year
  Sex: Female

DRUGS (9)
  1. XELJANZ [Suspect]
     Active Substance: TOFACITINIB CITRATE
     Indication: Rheumatoid arthritis
     Dosage: 5 MG, 2X/DAY
     Route: 048
     Dates: start: 201803
  2. XELJANZ [Suspect]
     Active Substance: TOFACITINIB CITRATE
     Dosage: 5 MG, ALTERNATE DAY
     Route: 048
  3. XELJANZ [Suspect]
     Active Substance: TOFACITINIB CITRATE
     Dosage: 5 MG, 1X/DAY
     Dates: start: 20210501
  4. XELJANZ [Suspect]
     Active Substance: TOFACITINIB CITRATE
     Dosage: UNK
     Dates: start: 20210113
  5. MULTI BETIC [Concomitant]
     Dosage: UNK (0.2-1.5-50 )
  6. POTASSIUM [Concomitant]
     Active Substance: POTASSIUM
     Dosage: UNK (595)
  7. LATANOPROST [Concomitant]
     Active Substance: LATANOPROST
     Dosage: UNK (0.005 % DROPS)
  8. PROLIA [Concomitant]
     Active Substance: DENOSUMAB
     Dosage: UNK
  9. CALCITRIOL [Concomitant]
     Active Substance: CALCITRIOL
     Dosage: UNK

REACTIONS (6)
  - Nephropathy [Not Recovered/Not Resolved]
  - Condition aggravated [Not Recovered/Not Resolved]
  - Rheumatoid arthritis [Unknown]
  - Blood test abnormal [Unknown]
  - Arthralgia [Unknown]
  - Intentional product misuse [Unknown]

NARRATIVE: CASE EVENT DATE: 20190901
